FAERS Safety Report 9500842 (Version 2)
Quarter: 2013Q3

REPORT INFORMATION
  Report Type: Report from Study
  Country: JP (occurrence: JP)
  Receive Date: 20130905
  Receipt Date: 20130905
  Transmission Date: 20140515
  Serious: Yes (Hospitalization)
  Sender: FDA-Public Use
  Company Number: JP-VERTEX PHARMACEUTICALS INC-AE-2012-003754

PATIENT
  Age: 69 Year
  Sex: Male

DRUGS (15)
  1. VX-950 (TELAPREVIR) [Suspect]
     Indication: CHRONIC HEPATITIS C
     Dosage: 2250 MG, QD
     Route: 048
     Dates: start: 20120117, end: 20120123
  2. VX-950 (TELAPREVIR) [Suspect]
     Dosage: 750 MG, QD
     Route: 048
     Dates: start: 20120124, end: 20120207
  3. VX-950 (TELAPREVIR) [Suspect]
     Dosage: 1500 MG, QD
     Route: 048
     Dates: start: 20120207, end: 20120214
  4. VX-950 (TELAPREVIR) [Suspect]
     Dosage: 1000 MG, QD
     Route: 048
     Dates: start: 20120214, end: 20120410
  5. REBETOL [Suspect]
     Indication: CHRONIC HEPATITIS C
     Dosage: 800 MG, QD
     Route: 048
     Dates: start: 20120117, end: 20120120
  6. REBETOL [Suspect]
     Dosage: 200 MG, QD
     Route: 048
     Dates: start: 20120121, end: 20120128
  7. REBETOL [Suspect]
     Dosage: 400 MG, QD
     Route: 048
     Dates: start: 20120129, end: 20120221
  8. REBETOL [Suspect]
     Dosage: 200 MG, QD
     Route: 048
     Dates: start: 20120222, end: 20120423
  9. REBETOL [Suspect]
     Dosage: 400 MG, QD
     Route: 048
     Dates: start: 20120424, end: 20120702
  10. PEGINTRON [Suspect]
     Indication: CHRONIC HEPATITIS C
     Dosage: 1.5 ?G/KG, QW
     Route: 058
     Dates: start: 20120117, end: 20120117
  11. PEGINTRON [Suspect]
     Dosage: 0.92 ?G/KG, QW
     Route: 058
     Dates: start: 20120124, end: 20120207
  12. PEGINTRON [Suspect]
     Dosage: 0.61 ?G/KG, QW
     Route: 058
     Dates: start: 20120214
  13. PEGINTRON [Suspect]
     Dosage: 0.6 ?G/KG, QW
     Route: 058
     Dates: end: 20120327
  14. PEGINTRON [Suspect]
     Dosage: 1 ?G/KG, QW
     Route: 058
     Dates: start: 20120410, end: 20120703
  15. AMARYL [Concomitant]
     Dosage: 1 MG, QD
     Route: 048

REACTIONS (3)
  - Renal disorder [Recovered/Resolved]
  - Decreased appetite [Recovered/Resolved]
  - Hyperuricaemia [Recovered/Resolved]
